FAERS Safety Report 6227381-0 (Version None)
Quarter: 2009Q2

REPORT INFORMATION
  Report Type: 
  Country: None (occurrence: None)
  Receive Date: 20090610
  Receipt Date: 20090603
  Transmission Date: 20091009
  Serious: Yes (Life-Threatening, Hospitalization)
  Sender: FDA-Public Use
  Company Number: 2009JP002765

PATIENT
  Age: 53 Year
  Sex: Female
  Weight: 50.7 kg

DRUGS (4)
  1. PROGRAF [Suspect]
     Indication: INTERSTITIAL LUNG DISEASE
     Dosage: 5 MG, D, ORAL, 30 MG, D, ORAL, 25 MG, D, ORAL
     Route: 048
     Dates: start: 20090401, end: 20090507
  2. PROGRAF [Suspect]
     Indication: INTERSTITIAL LUNG DISEASE
     Dosage: 5 MG, D, ORAL, 30 MG, D, ORAL, 25 MG, D, ORAL
     Route: 048
     Dates: start: 20090304
  3. PREDNISOLONE [Suspect]
     Dosage: 13 MG, D, ORAL
     Route: 048
     Dates: end: 20090303
  4. ZOSYN [Concomitant]

REACTIONS (3)
  - BONE MARROW FAILURE [None]
  - PNEUMONIA CYTOMEGALOVIRAL [None]
  - THROMBOTIC MICROANGIOPATHY [None]
